FAERS Safety Report 18325380 (Version 1)
Quarter: 2020Q3

REPORT INFORMATION
  Report Type: Spontaneous
  Country: JP (occurrence: JP)
  Receive Date: 20200929
  Receipt Date: 20200929
  Transmission Date: 20201103
  Serious: Yes (Hospitalization)
  Sender: FDA-Public Use
  Company Number: JP-JNJFOC-20191005608

PATIENT
  Age: 84 Year
  Sex: Female

DRUGS (2)
  1. TRANEXAMIC ACID. [Concomitant]
     Active Substance: TRANEXAMIC ACID
     Dosage: DAILY DOSE 1500 MG
  2. XARELTO [Suspect]
     Active Substance: RIVAROXABAN
     Indication: DISSEMINATED INTRAVASCULAR COAGULATION
     Dosage: 15 MG, QD
     Route: 048
     Dates: start: 20181001, end: 20191004

REACTIONS (7)
  - Skin necrosis [Recovered/Resolved]
  - Off label use [Unknown]
  - Product use in unapproved indication [Unknown]
  - Traumatic haemorrhage [Unknown]
  - Haemoglobin decreased [Recovered/Resolved with Sequelae]
  - Subcutaneous haematoma [Recovered/Resolved with Sequelae]
  - Contusion [Unknown]

NARRATIVE: CASE EVENT DATE: 20181001
